FAERS Safety Report 11288467 (Version 1)
Quarter: 2015Q3

REPORT INFORMATION
  Report Type: Spontaneous
  Country: JP (occurrence: JP)
  Receive Date: 20150721
  Receipt Date: 20150721
  Transmission Date: 20151125
  Serious: Yes (Hospitalization)
  Sender: FDA-Public Use
  Company Number: JP-UCBSA-2015018849

PATIENT
  Age: 81 Year
  Sex: Female

DRUGS (2)
  1. NEUPRO [Suspect]
     Active Substance: ROTIGOTINE
     Dosage: 16MG DAILY
     Route: 062
     Dates: end: 20150527
  2. NEUPRO [Suspect]
     Active Substance: ROTIGOTINE
     Indication: PARKINSON^S DISEASE
     Dosage: UNKNOWN DOSE
     Route: 062
     Dates: start: 201409

REACTIONS (2)
  - Sudden onset of sleep [Recovering/Resolving]
  - Hospitalisation [Unknown]

NARRATIVE: CASE EVENT DATE: 201505
